FAERS Safety Report 18220628 (Version 1)
Quarter: 2020Q3

REPORT INFORMATION
  Report Type: Spontaneous
  Country: CH (occurrence: CH)
  Receive Date: 20200902
  Receipt Date: 20200902
  Transmission Date: 20201103
  Serious: Yes (Other)
  Sender: FDA-Public Use
  Company Number: CH-BAUSCH-BL-2020-010735

PATIENT
  Age: 29 Year
  Sex: Female

DRUGS (2)
  1. MIOCHOL E [Suspect]
     Active Substance: ACETYLCHOLINE CHLORIDE
     Indication: PRODUCT USED FOR UNKNOWN INDICATION
     Dosage: AMPULE, 20MG/2ML
     Route: 065
  2. MIOCHOL E [Suspect]
     Active Substance: ACETYLCHOLINE CHLORIDE
     Dosage: 20MG/2ML
     Route: 065

REACTIONS (2)
  - Drug ineffective [Unknown]
  - Product quality issue [Unknown]

NARRATIVE: CASE EVENT DATE: 20200310
